FAERS Safety Report 9496546 (Version 3)
Quarter: 2013Q4

REPORT INFORMATION
  Report Type: Spontaneous
  Country: US (occurrence: US)
  Receive Date: 20130904
  Receipt Date: 20131107
  Transmission Date: 20140711
  Serious: Yes (Life-Threatening, Hospitalization)
  Sender: FDA-Public Use
  Company Number: US-SANOFI-AVENTIS-2013SA086984

PATIENT
  Age: 23 Year
  Sex: Female
  Weight: 50 kg

DRUGS (5)
  1. SOLOSTAR [Suspect]
     Indication: TYPE 1 DIABETES MELLITUS
     Dosage: PRODUCT START DATE: 2009 OR 2010
     Dates: start: 20100911
  2. LANTUS SOLOSTAR [Suspect]
     Indication: TYPE 1 DIABETES MELLITUS
     Dosage: PRODUCT START DATE: 2009 OR 2010 DOSE:27 UNIT(S)
     Route: 058
     Dates: start: 20100911
  3. NOVOLOG [Suspect]
     Indication: TYPE 1 DIABETES MELLITUS
     Route: 065
     Dates: start: 20100911
  4. ALLEGRA [Concomitant]
     Indication: SEASONAL ALLERGY
     Dates: start: 20100911
  5. FLONASE [Concomitant]
     Indication: SEASONAL ALLERGY
     Dosage: 1 SQUIRT PER NOSTRIL

REACTIONS (6)
  - Diabetic ketoacidosis [Not Recovered/Not Resolved]
  - Heart rate increased [Not Recovered/Not Resolved]
  - Vomiting [Not Recovered/Not Resolved]
  - Coma [Unknown]
  - Incorrect product storage [Unknown]
  - Drug dose omission [Unknown]
